FAERS Safety Report 15278239 (Version 1)
Quarter: 2018Q3

REPORT INFORMATION
  Report Type: Spontaneous
  Country: US (occurrence: US)
  Receive Date: 20180814
  Receipt Date: 20180814
  Transmission Date: 20181010
  Serious: Yes (Other)
  Sender: FDA-Public Use
  Company Number: US-SHIRE-US201831293

PATIENT
  Age: 74 Year
  Sex: Female

DRUGS (1)
  1. GATTEX [Suspect]
     Active Substance: TEDUGLUTIDE\WATER
     Indication: PRODUCT USED FOR UNKNOWN INDICATION
     Dosage: 0.400 UNK, UNK
     Route: 065
     Dates: start: 20171010

REACTIONS (1)
  - Breast mass [Recovered/Resolved]

NARRATIVE: CASE EVENT DATE: 20180729
